FAERS Safety Report 11649806 (Version 1)
Quarter: 2015Q4

REPORT INFORMATION
  Report Type: Spontaneous
  Country: FR (occurrence: FR)
  Receive Date: 20151021
  Receipt Date: 20151021
  Transmission Date: 20160304
  Serious: Yes (Hospitalization)
  Sender: FDA-Public Use
  Company Number: FR-PFIZER INC-2015346714

PATIENT
  Age: 15 Year
  Sex: Female

DRUGS (6)
  1. FEXOFENADINE HYDROCHLORIDE. [Suspect]
     Active Substance: FEXOFENADINE HYDROCHLORIDE
     Dosage: 180 MG, SINGLE
     Route: 048
     Dates: start: 20150502, end: 20150502
  2. SPASFON /00765801/ [Concomitant]
     Active Substance: PHLOROGLUCINOL\1,3,5-TRIMETHOXYBENZENE
     Dosage: 1 DF, SINGLE
     Dates: start: 20150502, end: 20150502
  3. TRAMADOL HYDROCHLORIDE. [Suspect]
     Active Substance: TRAMADOL HYDROCHLORIDE
     Dosage: 1 DF, SINGLE
     Route: 048
     Dates: start: 20150502, end: 20150502
  4. PARACETAMOL [Suspect]
     Active Substance: ACETAMINOPHEN
     Dosage: 9 G, SINGLE
     Route: 048
     Dates: start: 20150501, end: 20150501
  5. ZOLOFT [Suspect]
     Active Substance: SERTRALINE HYDROCHLORIDE
     Dosage: 14 DF, SINGLE
     Route: 048
     Dates: start: 20150502, end: 20150502
  6. PARACETAMOL [Suspect]
     Active Substance: ACETAMINOPHEN
     Dosage: 3 G, SINGLE
     Route: 048
     Dates: start: 20150502, end: 20150502

REACTIONS (4)
  - Poisoning [Recovered/Resolved]
  - Electrocardiogram QT prolonged [Recovered/Resolved]
  - Somnolence [Recovered/Resolved]
  - Vomiting [Recovered/Resolved]

NARRATIVE: CASE EVENT DATE: 20150501
